FAERS Safety Report 4718298-9 (Version None)
Quarter: 2005Q3

REPORT INFORMATION
  Report Type: 
  Country: None (occurrence: None)
  Receive Date: 20050718
  Receipt Date: 20050718
  Transmission Date: 20060218
  Serious: Yes (Other)
  Sender: FDA-Public Use
  Company Number: None

PATIENT
  Age: 18 Year
  Sex: Male

DRUGS (3)
  1. MORPHINE SULFATE [Suspect]
     Indication: FRACTURE
     Dosage: 2MG   Q3-5MIN PRN   INTRAVENOU
     Route: 042
     Dates: start: 20050716, end: 20050716
  2. MORPHINE SULFATE [Suspect]
     Indication: JAW OPERATION
     Dosage: 2MG   Q3-5MIN PRN   INTRAVENOU
     Route: 042
     Dates: start: 20050716, end: 20050716
  3. BENADRYL [Concomitant]

REACTIONS (2)
  - DRUG HYPERSENSITIVITY [None]
  - RASH [None]
